FAERS Safety Report 4881374-4 (Version None)
Quarter: 2005Q4

REPORT INFORMATION
  Report Type: 
  Country: None (occurrence: None)
  Receive Date: 20051212
  Receipt Date: 20050916
  Transmission Date: 20060501
  Serious: No
  Sender: FDA-Public Use
  Company Number: 2005-01955

PATIENT
  Age: 61 Year
  Sex: Female

DRUGS (2)
  1. VELCADE [Suspect]
     Dates: end: 20050913
  2. DOXORUBICIN (DOXORUBICIN) [Suspect]
     Dates: end: 20050913

REACTIONS (2)
  - BURNING SENSATION [None]
  - ERYTHEMA [None]
